FAERS Safety Report 24417465 (Version 2)
Quarter: 2024Q4

REPORT INFORMATION
  Report Type: Spontaneous
  Country: US (occurrence: US)
  Receive Date: 20241009
  Receipt Date: 20241115
  Transmission Date: 20250115
  Serious: Yes (Other)
  Sender: CSL BEHRING
  Company Number: US-BEH-2024181161

PATIENT
  Age: 48 Year
  Sex: Female

DRUGS (4)
  1. HIZENTRA [Suspect]
     Active Substance: HUMAN IMMUNOGLOBULIN G
     Indication: Chronic inflammatory demyelinating polyradiculoneuropathy
     Dosage: 50 G, BIW
     Route: 058
     Dates: start: 20240829
  2. LIDOCAINE [Concomitant]
     Active Substance: LIDOCAINE
  3. DIPHENHYDRAMINE [Concomitant]
     Active Substance: DIPHENHYDRAMINE
  4. ACETAMINOPHEN [Concomitant]
     Active Substance: ACETAMINOPHEN

REACTIONS (6)
  - Headache [Unknown]
  - Nasal congestion [Unknown]
  - Chest discomfort [Unknown]
  - Nasal congestion [Unknown]
  - Nausea [Unknown]
  - Headache [Unknown]

NARRATIVE: CASE EVENT DATE: 20240917
